FAERS Safety Report 7080897-X (Version None)
Quarter: 2010Q4

REPORT INFORMATION
  Report Type: 
  Country: None (occurrence: None)
  Receive Date: 20101103
  Receipt Date: 20101025
  Transmission Date: 20110411
  Serious: Yes (Other)
  Sender: FDA-Public Use
  Company Number: US-ASTRAZENECA-2010SE50543

PATIENT
  Age: 51 Year
  Sex: Female

DRUGS (3)
  1. CRESTOR [Suspect]
     Indication: HYPERCHOLESTEROLAEMIA
     Route: 048
  2. ZOCOR [Suspect]
     Indication: HYPERCHOLESTEROLAEMIA
  3. CADUET [Concomitant]

REACTIONS (2)
  - ALOPECIA [None]
  - FLUID RETENTION [None]
